FAERS Safety Report 8442756-7 (Version None)
Quarter: 2012Q2

REPORT INFORMATION
  Report Type: 
  Country: None (occurrence: None)
  Receive Date: 20120615
  Receipt Date: 20120607
  Transmission Date: 20120825
  Serious: Yes (Disabling, Other)
  Sender: FDA-Public Use
  Company Number: IN-SANOFI-AVENTIS-2012SA030045

PATIENT
  Sex: Male

DRUGS (3)
  1. LANTUS [Suspect]
     Route: 058
     Dates: start: 20110101
  2. LANTUS [Suspect]
     Route: 058
     Dates: start: 20110101
  3. AUTOPEN 24 [Suspect]
     Indication: DEVICE THERAPY
     Dates: start: 20110101

REACTIONS (2)
  - BLINDNESS UNILATERAL [None]
  - EYE HAEMORRHAGE [None]
